FAERS Safety Report 4689500-7 (Version None)
Quarter: 2005Q2

REPORT INFORMATION
  Report Type: 
  Country: None (occurrence: None)
  Receive Date: 20050613
  Receipt Date: 20050613
  Transmission Date: 20051028
  Serious: Yes (Hospitalization)
  Sender: FDA-Public Use
  Company Number: None

PATIENT
  Age: 58 Year
  Sex: Male
  Weight: 82 kg

DRUGS (1)
  1. RETEVASE [Suspect]
     Indication: CHEST PAIN
     Dosage: IV
     Route: 042
     Dates: start: 20050305

REACTIONS (2)
  - CHEST PAIN [None]
  - RECTAL HAEMORRHAGE [None]
